FAERS Safety Report 5423361-3 (Version None)
Quarter: 2007Q3

REPORT INFORMATION
  Report Type: 
  Country: None (occurrence: None)
  Receive Date: 20070823
  Receipt Date: 20070813
  Transmission Date: 20080115
  Serious: Yes (Other)
  Sender: FDA-Public Use
  Company Number: DE-RB-007202-07

PATIENT
  Age: 80 Year
  Sex: Female

DRUGS (4)
  1. BUPRENORPHINE HCL [Suspect]
     Indication: DRUG USE FOR UNKNOWN INDICATION
     Dosage: THREE TO FOUR TABLETS A DAY SOMETIMES FIVE TABLETS A DAY
     Route: 065
     Dates: start: 19990101
  2. TELFAST [Concomitant]
     Indication: DRUG USE FOR UNKNOWN INDICATION
     Route: 065
  3. ENA-PUREN [Concomitant]
     Indication: DRUG USE FOR UNKNOWN INDICATION
     Route: 065
  4. ASPIRIN [Concomitant]
     Dosage: DOSAGE AND FREQUENY UNKNOWN
     Route: 065

REACTIONS (1)
  - MENTAL IMPAIRMENT [None]
